FAERS Safety Report 11701503 (Version 2)
Quarter: 2015Q4

REPORT INFORMATION
  Report Type: Spontaneous
  Country: US (occurrence: US)
  Receive Date: 20151105
  Receipt Date: 20151105
  Transmission Date: 20160304
  Serious: No
  Sender: FDA-Public Use
  Company Number: US-MISSION PHARMACAL COMPANY-1043785

PATIENT
  Age: 37 Year
  Sex: Female

DRUGS (1)
  1. THIOLA [Suspect]
     Active Substance: TIOPRONIN
     Indication: CYSTINURIA
     Route: 048
     Dates: start: 20150319, end: 20150329

REACTIONS (4)
  - Nausea [Recovering/Resolving]
  - Flatulence [Recovering/Resolving]
  - Abdominal distension [Recovering/Resolving]
  - Rash pruritic [Recovering/Resolving]

NARRATIVE: CASE EVENT DATE: 20150329
